FAERS Safety Report 11450255 (Version 1)
Quarter: 2015Q3

REPORT INFORMATION
  Report Type: Spontaneous
  Country: FR (occurrence: None)
  Receive Date: 20150901
  Receipt Date: 20150901
  Transmission Date: 20151125
  Serious: Yes (Hospitalization)
  Sender: FDA-Public Use
  Company Number: 2015RN000054

PATIENT
  Age: 39 Year
  Sex: Female

DRUGS (5)
  1. SEROPLEX (ESCITALOPRAM OXALATE) [Concomitant]
     Active Substance: ESCITALOPRAM OXALATE
  2. FAMPYRA (FAMPRIDINE) [Concomitant]
     Active Substance: DALFAMPRIDINE
  3. TOVIAZ [Concomitant]
     Active Substance: FESOTERODINE FUMARATE
  4. ZOVIRAX [Suspect]
     Active Substance: ACYCLOVIR
     Indication: PRODUCT USED FOR UNKNOWN INDICATION
     Route: 042
     Dates: start: 20150602, end: 20150602
  5. BACLOFENE (BACLOFEN) [Concomitant]

REACTIONS (4)
  - Incorrect route of drug administration [None]
  - Vomiting [None]
  - Medication error [None]
  - Oxygen saturation decreased [None]

NARRATIVE: CASE EVENT DATE: 20150602
